FAERS Safety Report 14389442 (Version 2)
Quarter: 2018Q3

REPORT INFORMATION
  Report Type: Spontaneous
  Country: US (occurrence: US)
  Receive Date: 20180115
  Receipt Date: 20180924
  Transmission Date: 20181010
  Serious: Yes (Other)
  Sender: FDA-Public Use
  Company Number: US-SA-2017SA244810

PATIENT
  Age: 34 Year
  Sex: Female
  Weight: 68.03 kg

DRUGS (9)
  1. TAXOTERE [Suspect]
     Active Substance: DOCETAXEL
     Indication: BREAST CANCER
     Dosage: 147 MG,Q3W
     Route: 042
     Dates: start: 20061018, end: 20061018
  2. WELLBUTRIN [Concomitant]
     Active Substance: BUPROPION HYDROCHLORIDE
     Dosage: UNK UNK,UNK
     Route: 065
     Dates: start: 2005, end: 20120531
  3. TAXOL [Concomitant]
     Active Substance: PACLITAXEL
  4. HERCEPTIN [Concomitant]
     Active Substance: TRASTUZUMAB
  5. TAXOTERE [Suspect]
     Active Substance: DOCETAXEL
     Dosage: 147 MG,Q3W
     Route: 042
     Dates: start: 20070403, end: 20070403
  6. ATENOLOL. [Concomitant]
     Active Substance: ATENOLOL
     Dosage: UNK UNK,UNK
     Route: 065
     Dates: start: 2003, end: 2012
  7. GARLIQUE [Concomitant]
     Active Substance: GARLIC
     Dosage: UNK UNK,UNK
     Route: 065
     Dates: start: 2003, end: 2012
  8. PARAPLATIN [Concomitant]
     Active Substance: CARBOPLATIN
  9. SODIUM CHLORIDE. [Concomitant]
     Active Substance: SODIUM CHLORIDE

REACTIONS (4)
  - Alopecia [Recovering/Resolving]
  - Psychological trauma [Unknown]
  - Emotional distress [Unknown]
  - Anxiety [Unknown]

NARRATIVE: CASE EVENT DATE: 200710
